FAERS Safety Report 13085616 (Version 1)
Quarter: 2017Q1

REPORT INFORMATION
  Report Type: Spontaneous
  Country: US (occurrence: US)
  Receive Date: 20170103
  Receipt Date: 20170103
  Transmission Date: 20170428
  Serious: No
  Sender: FDA-Public Use
  Company Number: None

PATIENT
  Sex: Male

DRUGS (1)
  1. BACLOFEN. [Suspect]
     Active Substance: BACLOFEN
     Dates: start: 20161216, end: 20170102

REACTIONS (3)
  - Vomiting [None]
  - Product physical consistency issue [None]
  - Product solubility abnormal [None]
